FAERS Safety Report 9822145 (Version 1)
Quarter: 2014Q1

REPORT INFORMATION
  Report Type: Spontaneous
  Country: DE (occurrence: DE)
  Receive Date: 20140116
  Receipt Date: 20140116
  Transmission Date: 20141002
  Serious: Yes (Other)
  Sender: FDA-Public Use
  Company Number: PHHY2013DE138804

PATIENT
  Age: 8 Year
  Sex: Male

DRUGS (2)
  1. RITALIN [Suspect]
     Indication: ATTENTION DEFICIT/HYPERACTIVITY DISORDER
     Dosage: 3 DF, DAILY
     Route: 048
  2. RISPERIDONE [Suspect]
     Dosage: UNK UKN, UNK

REACTIONS (2)
  - Pancreatitis [Not Recovered/Not Resolved]
  - Enzyme level increased [Not Recovered/Not Resolved]
